FAERS Safety Report 8142729-8 (Version None)
Quarter: 2012Q1

REPORT INFORMATION
  Report Type: 
  Country: None (occurrence: None)
  Receive Date: 20120216
  Receipt Date: 20120210
  Transmission Date: 20120608
  Serious: Yes (Other)
  Sender: FDA-Public Use
  Company Number: DE-ALLERGAN-1202069US

PATIENT
  Age: 67 Year
  Sex: Male

DRUGS (2)
  1. DEXAMETHASONE [Suspect]
     Indication: RETINAL VEIN OCCLUSION
     Dosage: UNK
     Dates: start: 20110925, end: 20110925
  2. DEXAMETHASONE [Suspect]
     Dosage: UNK
     Dates: start: 20110316, end: 20110316

REACTIONS (2)
  - CATARACT [None]
  - GLAUCOMA [None]
